FAERS Safety Report 6651741-7 (Version None)
Quarter: 2010Q1

REPORT INFORMATION
  Report Type: 
  Country: None (occurrence: None)
  Receive Date: 20100325
  Receipt Date: 20100319
  Transmission Date: 20100710
  Serious: Yes (Other)
  Sender: FDA-Public Use
  Company Number: GB-ALLERGAN-1003101US

PATIENT
  Age: 98 Year
  Sex: Male

DRUGS (4)
  1. BIMATOPROST AND TIMOLOL MALEATE [Suspect]
     Indication: DRUG USE FOR UNKNOWN INDICATION
     Dosage: UNK
     Route: 047
     Dates: start: 20100307, end: 20100307
  2. BIMATOPROST AND TIMOLOL MALEATE [Suspect]
     Dosage: UNK
     Dates: start: 20100307, end: 20100307
  3. ASPIRIN [Concomitant]
     Dosage: 75 MG, QD
  4. ACETAMINOPHEN [Concomitant]

REACTIONS (2)
  - BLINDNESS TRANSIENT [None]
  - EYE PAIN [None]
